FAERS Safety Report 5105498-1 (Version None)
Quarter: 2006Q3

REPORT INFORMATION
  Report Type: 
  Country: None (occurrence: None)
  Receive Date: 20060915
  Receipt Date: 20050819
  Transmission Date: 20061208
  Serious: Yes (Death)
  Sender: FDA-Public Use
  Company Number: US-AVENTIS-200520110US

PATIENT
  Sex: Female

DRUGS (1)
  1. LANTUS [Suspect]

REACTIONS (2)
  - BLOOD GLUCOSE INCREASED [None]
  - DEATH [None]
